FAERS Safety Report 21424139 (Version 1)
Quarter: 2022Q4

REPORT INFORMATION
  Report Type: Spontaneous
  Country: US (occurrence: None)
  Receive Date: 20221007
  Receipt Date: 20221007
  Transmission Date: 20230112
  Serious: Yes (unspecified)
  Sender: FDA-Public Use
  Company Number: None

PATIENT
  Age: 78 Year
  Sex: Male

DRUGS (7)
  1. DALIRESP [Suspect]
     Active Substance: ROFLUMILAST
     Indication: Chronic obstructive pulmonary disease
     Dosage: FREQUENCY : DAILY;?
     Route: 048
     Dates: start: 20220831, end: 20220921
  2. MIRTAZAPINE [Concomitant]
     Active Substance: MIRTAZAPINE
     Dates: start: 20211103
  3. Trazod on e [Concomitant]
     Dates: start: 20210430
  4. PREDNISONE [Concomitant]
     Active Substance: PREDNISONE
     Dates: start: 20220324
  5. MIRTAZAPINE [Concomitant]
     Active Substance: MIRTAZAPINE
  6. TRAZODONE [Concomitant]
     Active Substance: TRAZODONE HYDROCHLORIDE
  7. PREDNISONE [Concomitant]
     Active Substance: PREDNISONE

REACTIONS (1)
  - Weight decreased [None]

NARRATIVE: CASE EVENT DATE: 20220921
